FAERS Safety Report 13938675 (Version 9)
Quarter: 2018Q2

REPORT INFORMATION
  Report Type: Report from Study
  Country: ES (occurrence: ES)
  Receive Date: 20170906
  Receipt Date: 20180614
  Transmission Date: 20180711
  Serious: Yes (Hospitalization, Other)
  Sender: FDA-Public Use
  Company Number: ES-AMGEN-ESPSL2017128042

PATIENT
  Age: 81 Year
  Sex: Male

DRUGS (3)
  1. SINTROM [Concomitant]
     Active Substance: ACENOCOUMAROL
     Dosage: UNK
     Dates: end: 20170823
  2. ARANESP [Suspect]
     Active Substance: DARBEPOETIN ALFA
     Indication: PRODUCT USED FOR UNKNOWN INDICATION
     Dosage: UNK
     Route: 065
  3. NPLATE [Suspect]
     Active Substance: ROMIPLOSTIM
     Indication: THROMBOCYTOPENIC PURPURA
     Dosage: 500 MCG, QWK
     Route: 065
     Dates: end: 20171117

REACTIONS (11)
  - Toxicity to various agents [Unknown]
  - Urticaria [Not Recovered/Not Resolved]
  - Eczema [Recovered/Resolved]
  - Drug effect incomplete [Unknown]
  - Influenza [Unknown]
  - Epistaxis [Recovered/Resolved]
  - Atrial fibrillation [Unknown]
  - Platelet count abnormal [Unknown]
  - Autoimmune disorder [Unknown]
  - Kidney infection [Unknown]
  - Skin reaction [Recovered/Resolved]

NARRATIVE: CASE EVENT DATE: 2017
